FAERS Safety Report 9156372 (Version 6)
Quarter: 2013Q4

REPORT INFORMATION
  Report Type: Spontaneous
  Country: GB (occurrence: None)
  Receive Date: 20130204
  Receipt Date: 20131008
  Transmission Date: 20140711
  Serious: Yes (Other)
  Sender: FDA-Public Use
  Company Number: AUR-APL-2013-01047

PATIENT
  Age: 81 Year
  Sex: Male

DRUGS (1)
  1. CITALOPRAM [Suspect]
     Indication: PRODUCT USED FOR UNKNOWN INDICATION
     Dosage: STOPPED
     Dates: start: 2010

REACTIONS (2)
  - Loss of consciousness [None]
  - Treatment noncompliance [None]
